FAERS Safety Report 7524871-5 (Version None)
Quarter: 2011Q2

REPORT INFORMATION
  Report Type: 
  Country: None (occurrence: None)
  Receive Date: 20110602
  Receipt Date: 20110602
  Transmission Date: 20111010
  Serious: Yes (Other)
  Sender: FDA-Public Use
  Company Number: None

PATIENT
  Age: 54 Year
  Sex: Female
  Weight: 111.1313 kg

DRUGS (2)
  1. NASONEX [Suspect]
     Indication: NASAL SEPTUM DEVIATION
     Dosage: 2 SPRAY EACH NOSTRIL EVERY NIGHT NASAL
     Route: 045
     Dates: start: 20110115, end: 20110516
  2. NASONEX [Suspect]
     Indication: BLOOD URINE PRESENT
     Dosage: 2 SPRAY EACH NOSTRIL EVERY NIGHT NASAL
     Route: 045
     Dates: start: 20110115, end: 20110516

REACTIONS (4)
  - BLOOD URINE PRESENT [None]
  - DRUG INEFFECTIVE [None]
  - EMOTIONAL DISTRESS [None]
  - NASAL SEPTAL OPERATION [None]
